FAERS Safety Report 25075617 (Version 1)
Quarter: 2025Q1

REPORT INFORMATION
  Report Type: Spontaneous
  Country: JP (occurrence: JP)
  Receive Date: 20250313
  Receipt Date: 20250313
  Transmission Date: 20250409
  Serious: Yes (Other)
  Sender: MARKSANS PHARMA LIMITED
  Company Number: JP-MARKSANS PHARMA LIMITED-MPL202500022

PATIENT

DRUGS (1)
  1. DULOXETINE HYDROCHLORIDE [Suspect]
     Active Substance: DULOXETINE HYDROCHLORIDE
     Indication: Hypoaesthesia
     Route: 065

REACTIONS (3)
  - Parkinson^s disease [Recovered/Resolved]
  - Parkinsonism [Recovered/Resolved]
  - Unmasking of previously unidentified disease [Unknown]
